FAERS Safety Report 23496281 (Version 1)
Quarter: 2024Q1

REPORT INFORMATION
  Report Type: Spontaneous
  Country: US (occurrence: None)
  Receive Date: 20240207
  Receipt Date: 20240207
  Transmission Date: 20240409
  Serious: No
  Sender: FDA-Public Use
  Company Number: US-ROCHE-3414113

PATIENT
  Sex: Female

DRUGS (2)
  1. XOLAIR [Suspect]
     Active Substance: OMALIZUMAB
     Indication: Idiopathic urticaria
     Route: 058
  2. XOLAIR [Suspect]
     Active Substance: OMALIZUMAB

REACTIONS (12)
  - Dizziness [Unknown]
  - Chest pain [Unknown]
  - Nausea [Unknown]
  - Hot flush [Unknown]
  - Feeling cold [Unknown]
  - Anxiety [Unknown]
  - Rash [Unknown]
  - COVID-19 [Unknown]
  - Mast cell activation syndrome [Unknown]
  - Burning sensation [Unknown]
  - Vein disorder [Unknown]
  - Off label use [Unknown]
